FAERS Safety Report 8623601-3 (Version None)
Quarter: 2012Q3

REPORT INFORMATION
  Report Type: 
  Country: None (occurrence: None)
  Receive Date: 20120827
  Receipt Date: 20120820
  Transmission Date: 20120928
  Serious: Yes (Death)
  Sender: FDA-Public Use
  Company Number: US-ASTELLAS-2012US007142

PATIENT
  Sex: Female

DRUGS (4)
  1. ALDACTONE [Concomitant]
     Indication: OEDEMA
     Dosage: 50 MG, UID/QD
     Route: 048
  2. DOXEPIN [Concomitant]
     Indication: PRURITUS
     Dosage: 25 MG, UID/QD
     Route: 048
     Dates: start: 20120501
  3. PROGRAF [Suspect]
     Indication: LIVER TRANSPLANT
     Dosage: 2 MG IN AM/1 MG IN PM
     Route: 048
     Dates: start: 20021011
  4. PROGRAF [Suspect]
     Dosage: 1 MG, BID
     Route: 048
     Dates: start: 20090101, end: 20120816

REACTIONS (2)
  - HEPATIC CIRRHOSIS [None]
  - HEPATIC FAILURE [None]
